FAERS Safety Report 17074269 (Version 4)
Quarter: 2020Q1

REPORT INFORMATION
  Report Type: Spontaneous
  Country: BR (occurrence: BR)
  Receive Date: 20191126
  Receipt Date: 20200102
  Transmission Date: 20200409
  Serious: Yes (Hospitalization, Other)
  Sender: FDA-Public Use
  Company Number: BR-SA-2019SA115884

PATIENT
  Age: 64 Year
  Sex: Female
  Weight: 70 kg

DRUGS (5)
  1. LANTUS [Suspect]
     Active Substance: INSULIN GLARGINE
     Indication: DIABETES MELLITUS MANAGEMENT
     Dosage: UNK UNK, BID
     Route: 058
     Dates: start: 2017
  2. HUMALOG [Concomitant]
     Active Substance: INSULIN LISPRO
     Indication: DIABETES MELLITUS MANAGEMENT
     Dosage: UNKNOWN
     Route: 058
  3. LANTUS [Suspect]
     Active Substance: INSULIN GLARGINE
     Indication: TYPE 1 DIABETES MELLITUS
     Dosage: 9 UIU, QD
     Route: 058
  4. LANTUS [Suspect]
     Active Substance: INSULIN GLARGINE
     Dosage: 10 UIU, QD
     Route: 065
  5. HUMALOG [Concomitant]
     Active Substance: INSULIN LISPRO
     Indication: TYPE 1 DIABETES MELLITUS

REACTIONS (11)
  - Nervousness [Unknown]
  - Syncope [Unknown]
  - Tumour excision [Unknown]
  - Product storage error [Unknown]
  - Pain [Unknown]
  - Inappropriate schedule of product administration [Unknown]
  - Hyperglycaemia [Unknown]
  - Asthenia [Unknown]
  - Malaise [Unknown]
  - Vision blurred [Unknown]
  - Device operational issue [Unknown]

NARRATIVE: CASE EVENT DATE: 20190429
